FAERS Safety Report 15613912 (Version 1)
Quarter: 2018Q4

REPORT INFORMATION
  Report Type: Report from Study
  Country: US (occurrence: US)
  Receive Date: 20181113
  Receipt Date: 20181113
  Transmission Date: 20190205
  Serious: Yes (Hospitalization)
  Sender: FDA-Public Use
  Company Number: US-ACTELION-A-NJ2018-175150

PATIENT
  Age: 52 Year
  Sex: Female

DRUGS (16)
  1. TRACLEER [Suspect]
     Active Substance: BOSENTAN
     Indication: PULMONARY ARTERIAL HYPERTENSION
     Dosage: 125 MG, UNK
     Route: 048
  2. ASPIRIN. [Concomitant]
     Active Substance: ASPIRIN
     Dosage: 81 MG, UNK
  3. PROMETHAZINE - CODEINE [Concomitant]
     Active Substance: CODEINE\PROMETHAZINE
  4. VITAMIN D [Concomitant]
     Active Substance: CHOLECALCIFEROL
  5. FLONASE [Concomitant]
     Active Substance: FLUTICASONE PROPIONATE
  6. CEFDINIR. [Concomitant]
     Active Substance: CEFDINIR
  7. FERROUS SULFATE. [Concomitant]
     Active Substance: FERROUS SULFATE
  8. OMEPRAZOLE. [Concomitant]
     Active Substance: OMEPRAZOLE
  9. CLARITIN [Concomitant]
     Active Substance: LORATADINE
  10. SILDENAFIL. [Concomitant]
     Active Substance: SILDENAFIL
  11. ALENDRONATE SODIUM. [Concomitant]
     Active Substance: ALENDRONATE SODIUM
  12. PREDNISONE. [Concomitant]
     Active Substance: PREDNISONE
  13. RANITIDINE. [Concomitant]
     Active Substance: RANITIDINE
  14. MUCINEX [Concomitant]
     Active Substance: GUAIFENESIN
  15. ESTRADIOL. [Concomitant]
     Active Substance: ESTRADIOL
  16. ADVAIR HFA [Concomitant]
     Active Substance: FLUTICASONE PROPIONATE\SALMETEROL XINAFOATE

REACTIONS (3)
  - Upper respiratory tract infection [Recovering/Resolving]
  - Malaise [Not Recovered/Not Resolved]
  - Urinary tract infection [Unknown]
